FAERS Safety Report 8632707 (Version 2)
Quarter: 2012Q4

REPORT INFORMATION
  Report Type: 
  Country: US (occurrence: US)
  Receive Date: 20120625
  Receipt Date: 20121214
  Transmission Date: 20130627
  Serious: Yes (Hospitalization)
  Sender: FDA-Public Use
  Company Number: US-BAYER-2012-062113

PATIENT
  Age: 17 Year
  Sex: Female
  Weight: 63.95 kg

DRUGS (5)
  1. YAZ [Suspect]
     Indication: ACNE
     Dosage: UNK
     Dates: start: 20090304, end: 20090714
  2. YASMIN [Suspect]
  3. MINOCYCLINE [Concomitant]
     Dosage: 75 mg, UNK
     Route: 048
     Dates: start: 2004, end: 2010
  4. MOTRIN [Concomitant]
     Indication: GENERAL BODY PAIN
     Dosage: UNK
     Route: 048
     Dates: start: 20090711, end: 20090714
  5. ADVIL [Concomitant]
     Indication: GENERAL BODY PAIN
     Dosage: 2 tablets, TID
     Route: 048
     Dates: start: 20090711, end: 20090714

REACTIONS (12)
  - Off label use [None]
  - Deep vein thrombosis [None]
  - Emotional distress [None]
  - Injury [None]
  - General physical health deterioration [None]
  - Anxiety [None]
  - Pain [None]
  - Pain [None]
  - Pain in extremity [None]
  - Oedema peripheral [None]
  - Infection [None]
  - Vein disorder [None]
